FAERS Safety Report 7671650-4 (Version None)
Quarter: 2011Q3

REPORT INFORMATION
  Report Type: 
  Country: None (occurrence: None)
  Receive Date: 20110809
  Receipt Date: 20110726
  Transmission Date: 20111222
  Serious: Yes (Other)
  Sender: FDA-Public Use
  Company Number: GB-UCBSA-037867

PATIENT
  Age: 83 Year
  Sex: Female

DRUGS (6)
  1. TRAMADOL HCL [Concomitant]
  2. ALFENTANIL [Concomitant]
     Route: 062
  3. STEROID [Concomitant]
     Indication: POLYMYALGIA RHEUMATICA
     Route: 048
     Dates: start: 20031001
  4. SINEMET [Concomitant]
     Indication: PARKINSON'S DISEASE
     Route: 048
     Dates: start: 20000606
  5. ROTIGOTINE [Suspect]
     Dosage: 4 MG
     Route: 062
     Dates: start: 20110407, end: 20110627
  6. STEROID [Concomitant]
     Route: 048
     Dates: start: 20031001

REACTIONS (2)
  - ERYTHEMA [None]
  - BLISTER [None]
